APPROVED DRUG PRODUCT: KELNOR 1/50
Active Ingredient: ETHINYL ESTRADIOL; ETHYNODIOL DIACETATE
Strength: 0.05MG;1MG
Dosage Form/Route: TABLET;ORAL-28
Application: A072723 | Product #001 | TE Code: AB
Applicant: WATSON LABORATORIES INC
Approved: Dec 30, 1991 | RLD: No | RS: Yes | Type: RX